FAERS Safety Report 12601277 (Version 1)
Quarter: 2016Q3

REPORT INFORMATION
  Report Type: Spontaneous
  Country: NL (occurrence: NL)
  Receive Date: 20160728
  Receipt Date: 20160728
  Transmission Date: 20161109
  Serious: Yes (Other)
  Sender: FDA-Public Use
  Company Number: NL-TEVA-680259ACC

PATIENT
  Age: 67 Year
  Sex: Female

DRUGS (7)
  1. FLUCLOXACILLINE CAPSULE 500MG [Concomitant]
     Dosage: IF NECESSARY WHEN MAMMA IS INFLAMED
     Route: 048
  2. CALCIUM CARBONATE CHEW TABLET 1.25G (500MG CA) [Concomitant]
     Dosage: 1.25 GRAM DAILY; ONCE DAILY ONE PIECE
     Route: 048
  3. HYDROCHLOROTHIAZIDE TABLET 12.5MG [Concomitant]
     Dosage: 12.5 MILLIGRAM DAILY; ONCE DAILY ONE PIECE
     Route: 048
     Dates: start: 20160111
  4. TAMOXIFEN TABLET 20MG [Suspect]
     Active Substance: TAMOXIFEN
     Dosage: 20 MILLIGRAM DAILY; ONCE DAILY ONE PIECE FOR 2 WEEKS, 1 FOR 2 DAYS, 1 - THEN STOP
     Route: 048
     Dates: start: 20160105
  5. METOPROLOL TABLET MGA 200MG (SUCCINAAT) [Concomitant]
     Dosage: 200 MILLIGRAM DAILY; ONCE DAILY ONE PIECE
     Route: 048
     Dates: start: 20151228
  6. ATORVASTATINE TABLET OMHULD 40MG (OUD) [Concomitant]
     Dosage: 40 MILLIGRAM DAILY; ONCE DAILY ONE PIECE
     Route: 048
     Dates: start: 20151228
  7. DESLORATADINE TABLET 5MG [Concomitant]
     Dosage: 5 MILLIGRAM DAILY; ONCE DAILY ONE PIECE
     Route: 048
     Dates: start: 20150617

REACTIONS (3)
  - Colitis microscopic [Recovered/Resolved]
  - Diarrhoea [Recovered/Resolved]
  - Abdominal pain [Recovered/Resolved]

NARRATIVE: CASE EVENT DATE: 20160119
